FAERS Safety Report 5237667-4 (Version None)
Quarter: 2007Q1

REPORT INFORMATION
  Report Type: 
  Country: None (occurrence: None)
  Receive Date: 20070214
  Receipt Date: 20070205
  Transmission Date: 20070707
  Serious: Yes (Hospitalization)
  Sender: FDA-Public Use
  Company Number: AT-ROCHE-481454

PATIENT
  Age: 71 Year
  Sex: Male
  Weight: 102 kg

DRUGS (3)
  1. PEG-INTERFERON ALFA 2A (RO 25-8310) [Suspect]
     Route: 058
     Dates: start: 20061106
  2. ENALAPRIL MALEATE [Concomitant]
     Dates: start: 20010615
  3. ACETAMINOPHEN [Concomitant]
     Dates: start: 20061106

REACTIONS (1)
  - SYNCOPE [None]
